FAERS Safety Report 6759589-X (Version None)
Quarter: 2010Q2

REPORT INFORMATION
  Report Type: 
  Country: None (occurrence: None)
  Receive Date: 20100608
  Receipt Date: 20100525
  Transmission Date: 20101027
  Serious: Yes (Disabling)
  Sender: FDA-Public Use
  Company Number: NL-MYLANLABS-2010S1009209

PATIENT
  Age: 71 Year
  Sex: Male

DRUGS (2)
  1. CIPROFLOXACIN [Suspect]
     Indication: LOCALISED INFECTION
     Dosage: 400MG TWICE DAILY
     Route: 042
  2. CLINDAMYCIN [Concomitant]
     Indication: LOCALISED INFECTION
     Dosage: 600MG THREE TIMES A DAY
     Route: 042

REACTIONS (1)
  - HENOCH-SCHONLEIN PURPURA [None]
